FAERS Safety Report 23460400 (Version 1)
Quarter: 2024Q1

REPORT INFORMATION
  Report Type: Spontaneous
  Country: GB (occurrence: GB)
  Receive Date: 20240131
  Receipt Date: 20240131
  Transmission Date: 20240410
  Serious: Yes (Other)
  Sender: FDA-Public Use
  Company Number: None

PATIENT
  Age: 87 Year

DRUGS (17)
  1. APIXABAN [Suspect]
     Active Substance: APIXABAN
     Indication: Product used for unknown indication
  2. CALCIUM CARBONATE\SODIUM ALGINATE\SODIUM BICARBONATE [Concomitant]
     Active Substance: CALCIUM CARBONATE\SODIUM ALGINATE\SODIUM BICARBONATE
     Dosage: FOUR TIMES DAILY
  3. AMLODIPINE [Concomitant]
     Active Substance: AMLODIPINE BESYLATE
     Dosage: MORNING
  4. CHOLECALCIFEROL [Concomitant]
     Active Substance: CHOLECALCIFEROL
     Dosage: AM AND TEA
  5. IBUPROFEN [Concomitant]
     Active Substance: IBUPROFEN
     Dosage: APPLY TWICE DAILY WHEN REQUIRED
     Route: 061
  6. ATORVASTATIN [Concomitant]
     Active Substance: ATORVASTATIN
     Dosage: AT NIGHT
  7. HYPROMELLOSES [Concomitant]
     Active Substance: HYPROMELLOSES
     Dosage: APPLYFOUR TIMES DAILY AFFECTED EYE WHEN REQUIRED
  8. CALCIUM CARBONATE [Concomitant]
     Active Substance: CALCIUM CARBONATE
     Dosage: AM AND TEA
  9. LACTULOSE [Concomitant]
     Active Substance: LACTULOSE
     Dosage: 3.1 - 3.7 G / 5 ML
  10. FOLIC ACID [Concomitant]
     Active Substance: FOLIC ACID
     Dosage: MORNING
  11. MOMETASONE [Concomitant]
     Active Substance: MOMETASONE
     Dosage: 50MCCG/DOSE, 1 SPRAY BOTH NOSTRILS TWICE DAILY AS NECESSARY
  12. MEMANTINE [Concomitant]
     Active Substance: MEMANTINE
     Dosage: 10MG/ML, AT NIGHT
  13. ESOMEPRAZOLE [Concomitant]
     Active Substance: ESOMEPRAZOLE
     Dosage: AM AND TEA
  14. DOCUSATE [Concomitant]
     Active Substance: DOCUSATE
     Dosage: 50MG/5ML, TAKES REGULAR
  15. VENLAFAXINE [Concomitant]
     Active Substance: VENLAFAXINE HYDROCHLORIDE
     Dosage: AM AND TEA
  16. ACETAMINOPHEN [Concomitant]
     Active Substance: ACETAMINOPHEN
     Dosage: 1G FOUR TIMES DAILY WHEN REQUIRED
  17. HYDROXOCOBALAMINA [Concomitant]
     Dosage: 1MG/1ML AMPOULE

REACTIONS (2)
  - Haemorrhage intracranial [Unknown]
  - Fall [Unknown]
